FAERS Safety Report 5811030-7 (Version None)
Quarter: 2008Q3

REPORT INFORMATION
  Report Type: 
  Country: None (occurrence: None)
  Receive Date: 20080710
  Receipt Date: 20080702
  Transmission Date: 20090109
  Serious: Yes (Death, Life-Threatening, Hospitalization)
  Sender: FDA-Public Use
  Company Number: 2005JP002171

PATIENT
  Age: 31 Year
  Sex: Female

DRUGS (31)
  1. PROGRAF [Suspect]
     Indication: BONE MARROW TRANSPLANT
     Dosage: SEE IMAGE
     Route: 048
     Dates: end: 20041130
  2. PROGRAF [Suspect]
     Indication: BONE MARROW TRANSPLANT
     Dosage: SEE IMAGE
     Route: 048
     Dates: start: 20041204, end: 20041207
  3. PROGRAF [Suspect]
     Indication: BONE MARROW TRANSPLANT
     Dosage: SEE IMAGE
     Route: 048
     Dates: start: 20041208, end: 20041210
  4. PROGRAF [Suspect]
     Indication: BONE MARROW TRANSPLANT
     Dosage: SEE IMAGE
     Route: 048
     Dates: start: 20041211, end: 20041230
  5. PROGRAF [Suspect]
     Indication: BONE MARROW TRANSPLANT
     Dosage: SEE IMAGE
     Route: 048
     Dates: start: 20050608, end: 20050101
  6. PROGRAF [Suspect]
     Indication: BONE MARROW TRANSPLANT
     Dosage: SEE IMAGE
     Route: 048
     Dates: start: 20041231, end: 20050307
  7. PROGRAF [Suspect]
     Indication: BONE MARROW TRANSPLANT
     Dosage: SEE IMAGE
     Route: 048
     Dates: start: 20050308, end: 20050607
  8. PROGRAF [Suspect]
     Indication: BONE MARROW TRANSPLANT
     Dosage: SEE IMAGE
     Route: 048
     Dates: start: 20050101, end: 20051008
  9. PROGRAF [Suspect]
     Indication: BONE MARROW TRANSPLANT
     Dosage: SEE IMAGE
     Route: 048
     Dates: start: 20051009, end: 20051027
  10. PROGRAF [Suspect]
     Indication: BONE MARROW TRANSPLANT
     Dosage: SEE IMAGE
     Route: 048
     Dates: start: 19980101
  11. CELLCEPT [Suspect]
     Indication: BONE MARROW TRANSPLANT
     Dosage: 1000 MG, /D, ORAL; 1000 MG, /D, ORAL;
     Route: 048
     Dates: start: 20041202, end: 20050922
  12. CELLCEPT [Suspect]
     Indication: BONE MARROW TRANSPLANT
     Dosage: 1000 MG, /D, ORAL; 1000 MG, /D, ORAL;
     Route: 048
     Dates: start: 20051031
  13. PREDNISOLONE [Suspect]
     Indication: BONE MARROW TRANSPLANT
     Dosage: 60 MG,/D, ORAL; 20 MG, /D; 17.5 MG, /D; 17.5 MG, /D
     Route: 048
     Dates: end: 20050107
  14. PREDNISOLONE [Suspect]
     Indication: BONE MARROW TRANSPLANT
     Dosage: 60 MG,/D, ORAL; 20 MG, /D; 17.5 MG, /D; 17.5 MG, /D
     Route: 048
     Dates: start: 19980101
  15. PREDNISOLONE [Suspect]
     Indication: BONE MARROW TRANSPLANT
     Dosage: 60 MG,/D, ORAL; 20 MG, /D; 17.5 MG, /D; 17.5 MG, /D
     Route: 048
     Dates: start: 20041211
  16. PREDNISOLONE [Suspect]
     Indication: BONE MARROW TRANSPLANT
     Dosage: 60 MG,/D, ORAL; 20 MG, /D; 17.5 MG, /D; 17.5 MG, /D
     Route: 048
     Dates: start: 20050108
  17. METHYLPREDNISOLONE [Concomitant]
  18. SIMULECT [Concomitant]
  19. UNASYN S (AMPICILLIN SODIUM, SULBACTAM SODIUM) INJECTION [Concomitant]
  20. BACTRAMIN (SULFAMETHOXAZOLE, TRIMETHOPRIM) INJECTION [Concomitant]
  21. FUNGUARD (MICAFUNGIN) INJECTION [Concomitant]
  22. GASTER INJECTION [Concomitant]
  23. PERDIPINE (NICARDIPINE) INJECTION [Concomitant]
  24. HERBESSER ^TANABE^ (DILTIAZEM HYDROCHLORIDE) INJECTION [Concomitant]
  25. ZOVIRAX [Concomitant]
  26. HERBESSOR R (DILTIAZEM HYDROCHLORIDE) [Concomitant]
  27. GASTER OD ORODISPERSIBLE CR TABLET [Concomitant]
  28. COTRIM [Concomitant]
  29. ITRACONAZOLE [Concomitant]
  30. PRODIF (FOSFLUCONAZOLE) INJECTION [Concomitant]
  31. LIPITOR [Concomitant]

REACTIONS (9)
  - COMPLICATIONS OF TRANSPLANTED LUNG [None]
  - CYTOMEGALOVIRUS VIRAEMIA [None]
  - EPSTEIN-BARR VIRUS ASSOCIATED LYMPHOPROLIFERATIVE DISORDER [None]
  - HYPERBILIRUBINAEMIA [None]
  - HYPERCHOLESTEROLAEMIA [None]
  - HYPERTRIGLYCERIDAEMIA [None]
  - PNEUMATOSIS INTESTINALIS [None]
  - PNEUMOMEDIASTINUM [None]
  - TREMOR [None]
